FAERS Safety Report 8439828 (Version 3)
Quarter: 2013Q4

REPORT INFORMATION
  Report Type: Spontaneous
  Country: US (occurrence: US)
  Receive Date: 20120305
  Receipt Date: 20131121
  Transmission Date: 20140711
  Serious: Yes (Hospitalization)
  Sender: FDA-Public Use
  Company Number: US-BAYER-2012-018927

PATIENT
  Age: 20 Year
  Sex: Female
  Weight: 68.03 kg

DRUGS (6)
  1. YASMIN [Suspect]
     Indication: CONTRACEPTION
     Dosage: UNK
     Dates: start: 20071219, end: 201003
  2. TYLENOL [Concomitant]
     Indication: PREMENSTRUAL PAIN
     Dosage: TAKEN MONTHLY
     Route: 048
     Dates: start: 20090625, end: 20090731
  3. BENADRYL [Concomitant]
     Indication: SEASONAL ALLERGY
     Dosage: TAKEN ONSET OF SPRING SEASON
     Route: 048
     Dates: start: 200906, end: 200908
  4. IBUPROFEN [Concomitant]
     Indication: PAIN
     Dosage: 800 MG, QID
     Route: 048
     Dates: start: 20090625
  5. VICODIN [Concomitant]
  6. HYDROCODONE/ACETAMINOPHEN [Concomitant]

REACTIONS (3)
  - Cholecystitis chronic [None]
  - Cholecystectomy [None]
  - Pain [None]
